FAERS Safety Report 22249827 (Version 1)
Quarter: 2023Q2

REPORT INFORMATION
  Report Type: Spontaneous
  Country: US (occurrence: None)
  Receive Date: 20230421
  Receipt Date: 20230421
  Transmission Date: 20230722
  Serious: Yes (Hospitalization)
  Sender: FDA-Public Use
  Company Number: None

PATIENT
  Age: 64 Year
  Sex: Male

DRUGS (12)
  1. TEMOZOLOMIDE [Suspect]
     Active Substance: TEMOZOLOMIDE
     Indication: Brain neoplasm malignant
     Route: 048
     Dates: start: 20230104
  2. BACTRIM DS [Concomitant]
     Active Substance: SULFAMETHOXAZOLE\TRIMETHOPRIM
     Dosage: OTHER QUANTITY : 800-160;?
  3. DEXAMETHASON TAB [Concomitant]
  4. ELIQUIS [Concomitant]
     Active Substance: APIXABAN
  5. FERROUS SULF TAB [Concomitant]
  6. FOLIC ACID TAB [Concomitant]
  7. GLIPIZIDE TAB [Concomitant]
  8. LEVETIRACETA TAB [Concomitant]
  9. METFORMIN TAB [Concomitant]
  10. MULTIPLE VIT TAB [Concomitant]
  11. ONDANSETRON TAB [Concomitant]
  12. PROCHLORPER TAB [Concomitant]

REACTIONS (2)
  - Fatigue [None]
  - Therapy interrupted [None]

NARRATIVE: CASE EVENT DATE: 20230303
